FAERS Safety Report 7641854-5 (Version None)
Quarter: 2011Q3

REPORT INFORMATION
  Report Type: 
  Country: None (occurrence: None)
  Receive Date: 20110728
  Receipt Date: 20110718
  Transmission Date: 20111222
  Serious: Yes (Hospitalization)
  Sender: FDA-Public Use
  Company Number: ES-ROCHE-790763

PATIENT
  Sex: Female
  Weight: 77 kg

DRUGS (2)
  1. BEVACIZUMAB [Suspect]
     Route: 042
     Dates: start: 20110622
  2. LETROZOLE [Suspect]
     Route: 048
     Dates: start: 20110602

REACTIONS (1)
  - CEREBRAL ISCHAEMIA [None]
